FAERS Safety Report 5961502-X (Version None)
Quarter: 2008Q4

REPORT INFORMATION
  Report Type: 
  Country: None (occurrence: None)
  Receive Date: 20081119
  Receipt Date: 20081104
  Transmission Date: 20090506
  Serious: Yes (Other)
  Sender: FDA-Public Use
  Company Number: US-FA-2008-001064

PATIENT
  Age: 61 Year
  Sex: Male

DRUGS (1)
  1. FLUOCINOLONE ACETONIDE [Suspect]
     Indication: DIABETIC RETINAL OEDEMA
     Dosage: 0.5 UG, QD, INTRAOCULAR
     Route: 031
     Dates: start: 20070123

REACTIONS (1)
  - GLAUCOMA [None]
